FAERS Safety Report 7730384-8 (Version None)
Quarter: 2011Q3

REPORT INFORMATION
  Report Type: 
  Country: None (occurrence: None)
  Receive Date: 20110906
  Receipt Date: 20110829
  Transmission Date: 20111222
  Serious: Yes (Other)
  Sender: FDA-Public Use
  Company Number: US-GILEAD-2011-0043425

PATIENT
  Age: 49 Year
  Sex: Female

DRUGS (2)
  1. LETAIRIS [Suspect]
     Indication: PRODUCT USED FOR UNKNOWN INDICATION
     Route: 048
     Dates: start: 20110827
  2. REMODULIN [Concomitant]

REACTIONS (5)
  - DIARRHOEA [None]
  - FATIGUE [None]
  - HAEMATOCHEZIA [None]
  - INSOMNIA [None]
  - HEADACHE [None]
